FAERS Safety Report 7557849-6 (Version None)
Quarter: 2011Q2

REPORT INFORMATION
  Report Type: 
  Country: None (occurrence: None)
  Receive Date: 20110620
  Receipt Date: 20110609
  Transmission Date: 20111010
  Serious: Yes (Hospitalization)
  Sender: FDA-Public Use
  Company Number: US-JNJFOC-20110606087

PATIENT
  Sex: Female
  Weight: 120.2 kg

DRUGS (15)
  1. HALDOL [Concomitant]
     Indication: PSYCHOTIC DISORDER
  2. NALTREXONE HYDROCHLORIDE [Concomitant]
  3. TYLENOL-500 [Concomitant]
     Indication: PYREXIA
  4. TRAZODONE HCL [Concomitant]
     Indication: SLEEP DISORDER THERAPY
  5. DEPAKOTE [Concomitant]
     Indication: DRUG THERAPY
  6. LISINOPRIL [Concomitant]
     Indication: HYPERTENSION
  7. VISTARIL [Concomitant]
     Indication: WITHDRAWAL SYNDROME
  8. METFORMIN HCL [Concomitant]
     Indication: TYPE 2 DIABETES MELLITUS
  9. RISPERDAL CONSTA [Suspect]
     Indication: PSYCHOTIC DISORDER
     Route: 030
  10. TYLENOL-500 [Concomitant]
     Indication: PAIN
  11. HYDROCHLOROTHIAZIDE [Concomitant]
     Indication: HYPERTENSION
  12. ZOCOR [Concomitant]
     Indication: BLOOD CHOLESTEROL INCREASED
  13. LUVOX [Concomitant]
     Indication: OBSESSIVE-COMPULSIVE DISORDER
  14. LANTUS [Concomitant]
     Indication: DIABETES MELLITUS
  15. IBUPROFEN [Concomitant]
     Indication: PAIN

REACTIONS (3)
  - HOMICIDAL IDEATION [None]
  - SUICIDAL IDEATION [None]
  - NIGHTMARE [None]
